FAERS Safety Report 15963149 (Version 1)
Quarter: 2019Q1

REPORT INFORMATION
  Report Type: Spontaneous
  Country: US (occurrence: US)
  Receive Date: 20190214
  Receipt Date: 20190214
  Transmission Date: 20190417
  Serious: No
  Sender: FDA-Public Use
  Company Number: US-ALLERGAN-1825368US

PATIENT
  Age: 45 Year
  Sex: Female
  Weight: 68.3 kg

DRUGS (2)
  1. CLOBETASOL [Suspect]
     Active Substance: CLOBETASOL
     Indication: TINEA CAPITIS
     Dosage: UNK
     Route: 061
     Dates: start: 201712
  2. TAZAROTENE - BP [Suspect]
     Active Substance: TAZAROTENE
     Indication: TINEA CAPITIS
     Dosage: UNK
     Route: 061
     Dates: start: 201712

REACTIONS (2)
  - Off label use [Unknown]
  - Application site pain [Recovering/Resolving]

NARRATIVE: CASE EVENT DATE: 201712
